FAERS Safety Report 9441153 (Version 1)
Quarter: 2013Q3

REPORT INFORMATION
  Report Type: Spontaneous
  Country: GB (occurrence: GB)
  Receive Date: 20130805
  Receipt Date: 20130805
  Transmission Date: 20140515
  Serious: Yes (Other)
  Sender: FDA-Public Use
  Company Number: GB-GLAXOSMITHKLINE-B0913049A

PATIENT
  Age: 66 Year
  Sex: Female

DRUGS (14)
  1. OMACOR [Suspect]
     Indication: PRODUCT USED FOR UNKNOWN INDICATION
     Dosage: 1000MG PER DAY
     Route: 048
     Dates: start: 2010, end: 2012
  2. AMITRIPTYLINE [Concomitant]
     Dosage: 100MG PER DAY
  3. CARBOCYSTEINE [Concomitant]
     Dosage: 50MG TWICE PER DAY
  4. EZETIMIBE [Concomitant]
     Dosage: 10MG PER DAY
  5. FOLIC ACID [Concomitant]
     Dosage: 5MG PER DAY
  6. FUROSEMIDE [Concomitant]
     Dosage: 80MG PER DAY
  7. HYDROXYCHLOROQUINE [Concomitant]
     Dosage: 200MG TWICE PER DAY
  8. LATANOPROST [Concomitant]
  9. NEFOPAM [Concomitant]
     Dosage: 1UD THREE TIMES PER DAY
  10. OMEPRAZOLE [Concomitant]
     Dosage: 20MG PER DAY
  11. PREGABALIN [Concomitant]
     Dosage: 150MG TWICE PER DAY
  12. SALBUTAMOL [Concomitant]
  13. SERETIDE [Concomitant]
  14. TIOTROPIUM [Concomitant]
     Dosage: 18MCG PER DAY

REACTIONS (2)
  - Pruritus [Recovered/Resolved]
  - Contusion [Not Recovered/Not Resolved]
